FAERS Safety Report 17939526 (Version 1)
Quarter: 2020Q2

REPORT INFORMATION
  Report Type: Report from Study
  Country: CN (occurrence: CN)
  Receive Date: 20200624
  Receipt Date: 20200624
  Transmission Date: 20200714
  Serious: Yes (Other)
  Sender: FDA-Public Use
  Company Number: CN-JNJFOC-20200625355

PATIENT

DRUGS (3)
  1. TOPAMAX [Suspect]
     Active Substance: TOPIRAMATE
     Dosage: MAXIMUM DOSE OF NO MORE THAN 4 MG/DAY
     Route: 048
  2. TOPAMAX [Suspect]
     Active Substance: TOPIRAMATE
     Indication: CHRONIC TIC DISORDER
     Dosage: 0.5 MG-1 MG/(KG D)
     Route: 048
  3. TOPAMAX [Suspect]
     Active Substance: TOPIRAMATE
     Dosage: INCREASED BY 5 MG/(KG D) EVERY 5 DAYS, UNTIL THE DOSE REACHED 6 MG/(KG D)  FOR 48 WEEKS.
     Route: 048

REACTIONS (5)
  - Memory impairment [Unknown]
  - Off label use [Unknown]
  - Unresponsive to stimuli [Unknown]
  - Somnolence [Unknown]
  - Product use in unapproved indication [Unknown]
